FAERS Safety Report 8500478-8 (Version None)
Quarter: 2012Q3

REPORT INFORMATION
  Report Type: 
  Country: None (occurrence: None)
  Receive Date: 20120710
  Receipt Date: 20120628
  Transmission Date: 20120928
  Serious: Yes (Other)
  Sender: FDA-Public Use
  Company Number: US-FRI-1000026268

PATIENT
  Sex: Female

DRUGS (6)
  1. NAPROXEN [Concomitant]
  2. THYROID TAB [Suspect]
     Dosage: 120 MG
     Route: 048
     Dates: start: 20090101, end: 20120101
  3. THYROID TAB [Suspect]
     Dosage: 120 MG
     Route: 048
     Dates: start: 20120101
  4. THYROID TAB [Suspect]
     Indication: HYPOTHYROIDISM
     Dates: start: 20010101, end: 20090101
  5. IMITREX [Concomitant]
     Indication: MIGRAINE
  6. ESTRACE [Concomitant]

REACTIONS (7)
  - PALLOR [None]
  - ABDOMINAL PAIN [None]
  - CONSTIPATION [None]
  - BLOOD PRESSURE INCREASED [None]
  - PALPITATIONS [None]
  - ALOPECIA [None]
  - VOMITING [None]
